FAERS Safety Report 25105274 (Version 1)
Quarter: 2025Q1

REPORT INFORMATION
  Report Type: Report from Study
  Country: US (occurrence: US)
  Receive Date: 20250321
  Receipt Date: 20250321
  Transmission Date: 20250409
  Serious: Yes (Hospitalization)
  Sender: DUCHESNAY
  Company Number: US-MEDUNIK-2025US000109

PATIENT

DRUGS (3)
  1. SODIUM PHENYLBUTYRATE [Suspect]
     Active Substance: SODIUM PHENYLBUTYRATE
     Indication: Argininosuccinate synthetase deficiency
     Route: 048
     Dates: start: 202307
  2. VITAMIN D3 [Concomitant]
     Active Substance: CHOLECALCIFEROL
     Indication: Product used for unknown indication
  3. ARGININE [Concomitant]
     Active Substance: ARGININE
     Indication: Product used for unknown indication

REACTIONS (1)
  - Pharyngitis streptococcal [Unknown]
